FAERS Safety Report 24207754 (Version 1)
Quarter: 2024Q3

REPORT INFORMATION
  Report Type: Spontaneous
  Country: US (occurrence: US)
  Receive Date: 20240814
  Receipt Date: 20240814
  Transmission Date: 20241017
  Serious: Yes (Other)
  Sender: SPECGX
  Company Number: US-SPECGX-T202401206

PATIENT

DRUGS (2)
  1. ACETAMINOPHEN\OXYCODONE HYDROCHLORIDE [Suspect]
     Active Substance: ACETAMINOPHEN\OXYCODONE HYDROCHLORIDE
     Indication: Pain
     Dosage: 1 DOSAGE FORM, PRN (QID)
     Route: 048
  2. ACETAMINOPHEN\OXYCODONE HYDROCHLORIDE [Suspect]
     Active Substance: ACETAMINOPHEN\OXYCODONE HYDROCHLORIDE
     Dosage: 1 DOSAGE FORM, PRN (QID)
     Route: 048
     Dates: start: 20240417

REACTIONS (4)
  - Drug dependence [Unknown]
  - Adverse event [Unknown]
  - Drug withdrawal syndrome [Unknown]
  - Homeless [Unknown]
